FAERS Safety Report 9123824 (Version 1)
Quarter: 2013Q1

REPORT INFORMATION
  Report Type: Spontaneous
  Country: US (occurrence: US)
  Receive Date: 20130227
  Receipt Date: 20130227
  Transmission Date: 20140127
  Serious: No
  Sender: FDA-Public Use
  Company Number: US-PFIZER INC-2013067632

PATIENT
  Age: 43 Year
  Sex: Female
  Weight: 83.9 kg

DRUGS (2)
  1. LEVOXYL [Suspect]
     Indication: HYPOTHYROIDISM
     Dosage: 125 UG, 1X/DAY
     Route: 048
  2. LEVOXYL [Suspect]
     Dosage: 137 UG, 1X/DAY
     Route: 048
     Dates: end: 20130220

REACTIONS (5)
  - Thyroid function test abnormal [Unknown]
  - Irritability [Unknown]
  - Mood altered [Unknown]
  - Abdominal discomfort [Unknown]
  - Fatigue [Unknown]
